FAERS Safety Report 7973906-4 (Version None)
Quarter: 2011Q4

REPORT INFORMATION
  Report Type: 
  Country: None (occurrence: None)
  Receive Date: 20111213
  Receipt Date: 20110923
  Transmission Date: 20120403
  Serious: Yes (Other)
  Sender: FDA-Public Use
  Company Number: US-ROCHE-1020880

PATIENT
  Sex: Male
  Weight: 68.1 kg

DRUGS (2)
  1. XELODA [Suspect]
     Route: 048
  2. XELODA [Suspect]
     Indication: PRODUCT USED FOR UNKNOWN INDICATION
     Route: 048
     Dates: start: 20110707

REACTIONS (2)
  - INFECTION [None]
  - BILE DUCT OBSTRUCTION [None]
